FAERS Safety Report 11828471 (Version 2)
Quarter: 2016Q2

REPORT INFORMATION
  Report Type: Spontaneous
  Country: US (occurrence: US)
  Receive Date: 20151211
  Receipt Date: 20160623
  Transmission Date: 20160815
  Serious: Yes (Death)
  Sender: FDA-Public Use
  Company Number: US-BAUSCH-BL-2015-003841

PATIENT
  Age: 68 Year
  Sex: Male

DRUGS (2)
  1. XENAZINE [Suspect]
     Active Substance: TETRABENAZINE
     Route: 048
     Dates: start: 20150424
  2. XENAZINE [Suspect]
     Active Substance: TETRABENAZINE
     Indication: DYSKINESIA
     Route: 048
     Dates: start: 20141013

REACTIONS (4)
  - Prescribed overdose [Unknown]
  - Off label use [Unknown]
  - Death [Fatal]
  - Memory impairment [Unknown]

NARRATIVE: CASE EVENT DATE: 20160609
